FAERS Safety Report 9096879 (Version 1)
Quarter: 2013Q1

REPORT INFORMATION
  Report Type: Spontaneous
  Country: GB (occurrence: GB)
  Receive Date: 20130211
  Receipt Date: 20130211
  Transmission Date: 20140127
  Serious: Yes (Hospitalization, Other)
  Sender: FDA-Public Use
  Company Number: GB-ELI_LILLY_AND_COMPANY-GB201301010386

PATIENT
  Age: 36 Year
  Sex: Female
  Weight: 66.67 kg

DRUGS (1)
  1. FLUOXETINE [Suspect]
     Dosage: 1 DF, UNKNOWN
     Route: 048
     Dates: start: 2008, end: 2008

REACTIONS (11)
  - Confusional state [Unknown]
  - Disinhibition [Recovering/Resolving]
  - Disturbance in attention [Recovering/Resolving]
  - Feeling of despair [Recovering/Resolving]
  - Personality change [Recovering/Resolving]
  - Sensory disturbance [Recovered/Resolved with Sequelae]
  - Anger [Recovered/Resolved with Sequelae]
  - Suggestibility [Recovering/Resolving]
  - Energy increased [Recovered/Resolved with Sequelae]
  - Feeling abnormal [Recovered/Resolved with Sequelae]
  - Malaise [Recovering/Resolving]
